FAERS Safety Report 9906025 (Version 1)
Quarter: 2014Q1

REPORT INFORMATION
  Report Type: Spontaneous
  Country: US (occurrence: US)
  Receive Date: 20140218
  Receipt Date: 20140218
  Transmission Date: 20141002
  Serious: No
  Sender: FDA-Public Use
  Company Number: US-GILEAD-2012-0049724

PATIENT
  Age: 60 Year
  Sex: Male
  Weight: 56.24 kg

DRUGS (3)
  1. LETAIRIS [Suspect]
     Indication: PRODUCT USED FOR UNKNOWN INDICATION
     Dosage: 5 MG, UNK
     Route: 048
     Dates: start: 20111229
  2. ADCIRCA [Concomitant]
  3. FLOLAN [Concomitant]

REACTIONS (2)
  - Dyspnoea [Unknown]
  - Fluid retention [Unknown]
